FAERS Safety Report 24419831 (Version 2)
Quarter: 2024Q4

REPORT INFORMATION
  Report Type: Spontaneous
  Country: JP (occurrence: JP)
  Receive Date: 20241010
  Receipt Date: 20241107
  Transmission Date: 20250115
  Serious: Yes (Other)
  Sender: UCB
  Company Number: JP-UCBJ-CD202409358UCBPHAPROD

PATIENT
  Age: 10 Year
  Sex: Male

DRUGS (1)
  1. VIMPAT [Suspect]
     Active Substance: LACOSAMIDE
     Indication: Partial seizures
     Dosage: 2 MILLIGRAM/KILOGRAM, ONCE DAILY (QD)
     Route: 048

REACTIONS (1)
  - Epilepsy [Unknown]
